FAERS Safety Report 7636790-4 (Version None)
Quarter: 2011Q3

REPORT INFORMATION
  Report Type: 
  Country: None (occurrence: None)
  Receive Date: 20110719
  Receipt Date: 20110714
  Transmission Date: 20111222
  Serious: Yes (Other)
  Sender: FDA-Public Use
  Company Number: 1000022171

PATIENT
  Age: 53 Year
  Sex: Female

DRUGS (1)
  1. TEFLARO [Suspect]
     Indication: CELLULITIS
     Dosage: 1200 MG (600 MG, 1 IN 12 HR), INTRAVENOUS DRIP
     Route: 041
     Dates: start: 20110701

REACTIONS (1)
  - IDIOPATHIC THROMBOCYTOPENIC PURPURA [None]
